FAERS Safety Report 13344496 (Version 3)
Quarter: 2017Q1

REPORT INFORMATION
  Report Type: Spontaneous
  Country: US (occurrence: US)
  Receive Date: 20170317
  Receipt Date: 20170331
  Transmission Date: 20170428
  Serious: No
  Sender: FDA-Public Use
  Company Number: US-BRISTOL-MYERS SQUIBB COMPANY-BMS-2017-023098

PATIENT
  Sex: Male

DRUGS (1)
  1. ABILIFY [Suspect]
     Active Substance: ARIPIPRAZOLE
     Indication: PRODUCT USED FOR UNKNOWN INDICATION
     Dosage: UNK
     Route: 065
     Dates: start: 20170306, end: 20170311

REACTIONS (6)
  - Blood glucose increased [Unknown]
  - Limb discomfort [Unknown]
  - Adverse event [Unknown]
  - Hyperglycaemia [Recovered/Resolved]
  - Fatigue [Unknown]
  - Akathisia [Unknown]

NARRATIVE: CASE EVENT DATE: 2017
